FAERS Safety Report 6433305-3 (Version None)
Quarter: 2009Q4

REPORT INFORMATION
  Report Type: 
  Country: None (occurrence: None)
  Receive Date: 20091109
  Receipt Date: 20091105
  Transmission Date: 20100525
  Serious: Yes (Hospitalization, Other)
  Sender: FDA-Public Use
  Company Number: BR-ABBOTT-08P-020-0474038-00

PATIENT
  Sex: Female

DRUGS (14)
  1. HUMIRA [Suspect]
     Indication: RHEUMATOID ARTHRITIS
     Dosage: 1 APPLICATION, EVERY 14 DAYS
     Route: 058
     Dates: start: 20080101
  2. METHOTREXATE [Concomitant]
     Indication: DRUG USE FOR UNKNOWN INDICATION
  3. FLUOXETINE [Concomitant]
     Indication: DRUG USE FOR UNKNOWN INDICATION
  4. ATORVASTATIN [Concomitant]
     Indication: DRUG USE FOR UNKNOWN INDICATION
  5. METFORMIN HCL [Concomitant]
     Indication: DRUG USE FOR UNKNOWN INDICATION
  6. CALCIUM [Concomitant]
     Indication: DRUG USE FOR UNKNOWN INDICATION
  7. COPOR [Concomitant]
     Indication: DRUG USE FOR UNKNOWN INDICATION
  8. OZZ [Concomitant]
     Indication: DRUG USE FOR UNKNOWN INDICATION
  9. PREDNISOLONE [Concomitant]
     Indication: DRUG USE FOR UNKNOWN INDICATION
  10. LEVOTHYROXINE SODIUM [Concomitant]
     Indication: DRUG USE FOR UNKNOWN INDICATION
  11. CALCITRIOL [Concomitant]
     Indication: DRUG USE FOR UNKNOWN INDICATION
  12. LISADOR [Concomitant]
     Indication: POSTOPERATIVE ANALGESIA
  13. TYLEX [Concomitant]
     Indication: POSTOPERATIVE ANALGESIA
  14. CEPHALEXIN [Concomitant]
     Indication: ANTIBIOTIC PROPHYLAXIS

REACTIONS (1)
  - FOOT DEFORMITY [None]
